FAERS Safety Report 8592634-8 (Version None)
Quarter: 2012Q3

REPORT INFORMATION
  Report Type: 
  Country: None (occurrence: None)
  Receive Date: 20120814
  Receipt Date: 20120810
  Transmission Date: 20120928
  Serious: No
  Sender: FDA-Public Use
  Company Number: US-PFIZER INC-2012195949

PATIENT
  Sex: Male

DRUGS (1)
  1. ADVIL [Suspect]
     Indication: PAIN
     Dosage: FOUR TO SIX CAPSULES IN EVERY 4 HOURS
     Route: 048

REACTIONS (2)
  - OVERDOSE [None]
  - DRUG INEFFECTIVE [None]
